FAERS Safety Report 17988477 (Version 2)
Quarter: 2021Q2

REPORT INFORMATION
  Report Type: Spontaneous
  Country: US (occurrence: US)
  Receive Date: 20200707
  Receipt Date: 20210411
  Transmission Date: 20210717
  Serious: No
  Sender: FDA-Public Use
  Company Number: US-ASTELLAS-2020US012824

PATIENT

DRUGS (3)
  1. PREDNISONE. [Concomitant]
     Active Substance: PREDNISONE
     Indication: ALOPECIA
     Dosage: UNK UNK, UNKNOWN FREQ.
     Route: 065
  2. XELJANZ [Concomitant]
     Active Substance: TOFACITINIB CITRATE
     Indication: ALOPECIA
     Route: 065
     Dates: start: 20200325
  3. TACROLIMUS. [Suspect]
     Active Substance: TACROLIMUS
     Indication: ALOPECIA
     Dosage: UNK UNK, UNKNOWN FREQ.
     Route: 065

REACTIONS (1)
  - Drug ineffective for unapproved indication [Unknown]
